FAERS Safety Report 18890036 (Version 1)
Quarter: 2021Q1

REPORT INFORMATION
  Report Type: Spontaneous
  Country: US (occurrence: US)
  Receive Date: 20210214
  Receipt Date: 20210214
  Transmission Date: 20210420
  Serious: No
  Sender: FDA-Public Use
  Company Number: US-TEVA-2021-US-1873417

PATIENT
  Age: 68 Year
  Sex: Female
  Weight: 48.53 kg

DRUGS (1)
  1. ALPRAZOLAM ACTAVIS [Suspect]
     Active Substance: ALPRAZOLAM
     Indication: GENERALISED ANXIETY DISORDER
     Dosage: 4 MILLIGRAM DAILY;
     Route: 048

REACTIONS (5)
  - Product taste abnormal [Unknown]
  - Abdominal pain upper [Unknown]
  - Drug ineffective [Unknown]
  - Headache [Unknown]
  - Wrong technique in product usage process [Unknown]
